APPROVED DRUG PRODUCT: NORINYL 1+80 28-DAY
Active Ingredient: MESTRANOL; NORETHINDRONE
Strength: 0.08MG;1MG
Dosage Form/Route: TABLET;ORAL-28
Application: N016725 | Product #001
Applicant: GD SEARLE LLC
Approved: Approved Prior to Jan 1, 1982 | RLD: No | RS: No | Type: DISCN